FAERS Safety Report 6124719-X (Version None)
Quarter: 2009Q1

REPORT INFORMATION
  Report Type: 
  Country: None (occurrence: None)
  Receive Date: 20090319
  Receipt Date: 20090313
  Transmission Date: 20090719
  Serious: Yes (Hospitalization)
  Sender: FDA-Public Use
  Company Number: US-SANOFI-SYNTHELABO-F01200900266

PATIENT

DRUGS (4)
  1. BEVACIZUMAB [Suspect]
     Route: 041
     Dates: start: 20090116, end: 20090116
  2. FLUOROURACIL [Suspect]
     Dosage: UNK
     Route: 042
  3. LEUCOVORIN CALCIUM [Suspect]
     Route: 041
  4. OXALIPLATIN [Suspect]
     Indication: COLON CANCER
     Route: 041

REACTIONS (3)
  - HAEMOGLOBIN DECREASED [None]
  - LARGE INTESTINAL ULCER [None]
  - RECTAL HAEMORRHAGE [None]
